FAERS Safety Report 8763606 (Version 2)
Quarter: 2012Q4

REPORT INFORMATION
  Report Type: Spontaneous
  Country: US (occurrence: None)
  Receive Date: 20120827
  Receipt Date: 20120907
  Transmission Date: 20130627
  Serious: Yes (Other)
  Sender: FDA-Public Use
  Company Number: 2012P1054251

PATIENT
  Age: 41 Year
  Sex: Female

DRUGS (4)
  1. MYORISAN 40 MG [Suspect]
     Indication: CYSTIC ACNE
     Route: 048
     Dates: start: 20120522, end: 20120619
  2. UNSPECIFIED THYROID MEDICATION [Concomitant]
  3. WELLBUTRIN [Concomitant]
  4. ZOLOFT [Concomitant]

REACTIONS (2)
  - Neck surgery [None]
  - Blood glucose increased [None]
